FAERS Safety Report 14232095 (Version 5)
Quarter: 2018Q1

REPORT INFORMATION
  Report Type: Report from Study
  Country: US (occurrence: US)
  Receive Date: 20171128
  Receipt Date: 20180201
  Transmission Date: 20180508
  Serious: Yes (Other)
  Sender: FDA-Public Use
  Company Number: US-AMGEN-USASL2017177432

PATIENT
  Age: 56 Year
  Sex: Female

DRUGS (3)
  1. ENBREL [Suspect]
     Active Substance: ETANERCEPT
     Indication: RHEUMATOID ARTHRITIS
     Dosage: 50 MG, UNK
     Route: 065
     Dates: start: 2016, end: 201711
  2. METHOTREXATE. [Suspect]
     Active Substance: METHOTREXATE
     Indication: RHEUMATOID ARTHRITIS
     Dosage: UNK
     Route: 065
  3. ENBREL [Suspect]
     Active Substance: ETANERCEPT
     Dosage: 50 MG, QWK
     Route: 065
     Dates: start: 20170623, end: 2017

REACTIONS (11)
  - Pruritus [Unknown]
  - Inflammation [Unknown]
  - Erythema [Unknown]
  - Local reaction [Recovered/Resolved]
  - Feeling hot [Unknown]
  - Drug hypersensitivity [Unknown]
  - Drug specific antibody present [Unknown]
  - Musculoskeletal disorder [Recovering/Resolving]
  - Pain [Unknown]
  - Peripheral swelling [Unknown]
  - Folliculitis [Unknown]

NARRATIVE: CASE EVENT DATE: 2017
